FAERS Safety Report 5499567-4 (Version None)
Quarter: 2007Q4

REPORT INFORMATION
  Report Type: 
  Country: None (occurrence: None)
  Receive Date: 20071026
  Receipt Date: 20071017
  Transmission Date: 20080405
  Serious: No
  Sender: FDA-Public Use
  Company Number: US-ELI_LILLY_AND_COMPANY-US200710002499

PATIENT
  Sex: Female

DRUGS (3)
  1. BYETTA [Suspect]
     Indication: TYPE 2 DIABETES MELLITUS
     Dosage: 5 UG, 2/D
     Route: 058
     Dates: start: 20060101
  2. BYETTA [Suspect]
     Dosage: 10 UG, 2/D
     Route: 058
     Dates: start: 20060101
  3. BYETTA [Suspect]
     Dosage: 10 UG, DAILY (1/D)
     Route: 058

REACTIONS (8)
  - BENIGN NEOPLASM OF THYROID GLAND [None]
  - BLOOD GLUCOSE ABNORMAL [None]
  - DIARRHOEA [None]
  - DYSGEUSIA [None]
  - FLATULENCE [None]
  - INSOMNIA [None]
  - LIPOMA [None]
  - NAUSEA [None]
